FAERS Safety Report 18249477 (Version 4)
Quarter: 2020Q3

REPORT INFORMATION
  Report Type: Spontaneous
  Country: US (occurrence: US)
  Receive Date: 20200909
  Receipt Date: 20200930
  Transmission Date: 20201103
  Serious: No
  Sender: FDA-Public Use
  Company Number: US-PFIZER INC-2020343253

PATIENT
  Age: 38 Year
  Sex: Female
  Weight: 65.77 kg

DRUGS (1)
  1. XELJANZ [Suspect]
     Active Substance: TOFACITINIB CITRATE
     Indication: ALOPECIA
     Dosage: 10 MG
     Dates: end: 202006

REACTIONS (4)
  - Feeling abnormal [Unknown]
  - Product use in unapproved indication [Unknown]
  - Off label use [Unknown]
  - Blood cholesterol increased [Unknown]
